FAERS Safety Report 13323148 (Version 1)
Quarter: 2017Q1

REPORT INFORMATION
  Report Type: Report from Study
  Country: US (occurrence: US)
  Receive Date: 20170308
  Receipt Date: 20170308
  Transmission Date: 20170428
  Serious: No
  Sender: FDA-Public Use
  Company Number: US-AMGEN-USASL2016160373

PATIENT

DRUGS (1)
  1. SENSIPAR [Suspect]
     Active Substance: CINACALCET HYDROCHLORIDE
     Indication: PRODUCT USED FOR UNKNOWN INDICATION
     Dosage: 60 MG, QD (EVERY NIGHT AT BEDTIME WITH FOOD)
     Route: 048

REACTIONS (4)
  - Pruritus [Unknown]
  - Hypoaesthesia [Unknown]
  - Muscle spasms [Unknown]
  - Swelling [Unknown]
